FAERS Safety Report 17440003 (Version 4)
Quarter: 2020Q2

REPORT INFORMATION
  Report Type: Spontaneous
  Country: US (occurrence: US)
  Receive Date: 20200220
  Receipt Date: 20200618
  Transmission Date: 20200713
  Serious: Yes (Hospitalization, Other)
  Sender: FDA-Public Use
  Company Number: US-PFIZER INC-2020074153

PATIENT
  Age: 79 Year
  Sex: Female
  Weight: 74.83 kg

DRUGS (19)
  1. PREMARIN [Suspect]
     Active Substance: ESTROGENS, CONJUGATED
     Dosage: 0.625 MG, ONE EVERY THREE DAYS
     Dates: start: 1972
  2. ACETAMINOPHEN. [Concomitant]
     Active Substance: ACETAMINOPHEN
     Dosage: 650 MG, UNK (2 EXTRA STRENGTH EVERY OTHER MORNING AND 2 MORE EVERY EVENING)
     Dates: start: 1993
  3. CRANBERRY. [Concomitant]
     Active Substance: CRANBERRY
     Dosage: UNK UNK, DAILY
     Dates: start: 2018
  4. POTASSIUM [Concomitant]
     Active Substance: POTASSIUM
     Dosage: 2 DF, UNK
     Dates: start: 201305
  5. LEVOTHYROXINE. [Concomitant]
     Active Substance: LEVOTHYROXINE
     Dosage: 75 MG, 1X/DAY [75 MG (PER DAY HALF HOUR BEFORE BREAKFAST)
     Dates: start: 199709
  6. FUROSEMIDE. [Concomitant]
     Active Substance: FUROSEMIDE
     Dosage: 40 MG, EVERY 3 OR 4TH DAY
     Dates: start: 201305
  7. SYSTANE (HYPROMELLOSE 2910 (4000 MPA.S)) [Concomitant]
     Active Substance: HYPROMELLOSE 2910 (4000 MPA.S)
     Dosage: 1 GTT, 3-4 TIMES A DAY (1 DROP EACH EYE)
     Dates: start: 200205
  8. ELIQUIS [Concomitant]
     Active Substance: APIXABAN
     Dosage: 2.5 MG, 2X/DAY
     Dates: start: 201508
  9. MAGNESIUM [Concomitant]
     Active Substance: MAGNESIUM
     Dosage: 400 MG, 2X/DAY (MORNING AND EVENING)
     Dates: start: 201310
  10. VITAMIN C [Concomitant]
     Active Substance: ASCORBIC ACID
     Dosage: 600 MG, DAILY
  11. PREMARIN [Suspect]
     Active Substance: ESTROGENS, CONJUGATED
     Indication: HOT FLUSH
     Dosage: UNK UNK, DAILY
     Dates: start: 1972
  12. PREMARIN [Suspect]
     Active Substance: ESTROGENS, CONJUGATED
     Indication: MEMORY IMPAIRMENT
     Dosage: 0.625 MG, ALTERNATE DAY (EVERY OTHER MORNING)
  13. ATENOLOL. [Concomitant]
     Active Substance: ATENOLOL
     Dosage: 50 MG, 1X/DAY (NOON)
     Dates: start: 199311
  14. PRAVASTATIN. [Concomitant]
     Active Substance: PRAVASTATIN
     Dosage: 80 MG, 1X/DAY (BEDTIME)
     Dates: start: 201205
  15. GEMFIBROZIL. [Concomitant]
     Active Substance: GEMFIBROZIL
     Dosage: 600 MG, 1X/DAY (NOON)
     Dates: start: 201205
  16. NITROGLYCERIN. [Concomitant]
     Active Substance: NITROGLYCERIN
     Dosage: 1/150TH, AS NEEDED
     Dates: start: 200007
  17. FISH OIL [Concomitant]
     Active Substance: FISH OIL
     Dosage: 1200 MG, DAILY (EVENING)
     Dates: start: 201507
  18. LOSARTAN. [Concomitant]
     Active Substance: LOSARTAN
     Dosage: 100-12-5 MG, 1X/DAY (NOON)
     Dates: start: 201601
  19. CALTRATE + D [CALCIUM CARBONATE;ERGOCALCIFEROL] [Concomitant]
     Dosage: UNK UNK, ALTERNATE DAY (EVERY OTHER DAY)
     Dates: start: 2018

REACTIONS (9)
  - Intentional product misuse [Recovered/Resolved]
  - Glaucoma [Not Recovered/Not Resolved]
  - Cognitive disorder [Recovered/Resolved]
  - Ulcer [Recovered/Resolved]
  - Macular degeneration [Not Recovered/Not Resolved]
  - Memory impairment [Not Recovered/Not Resolved]
  - Bronchitis [Unknown]
  - Visual impairment [Not Recovered/Not Resolved]
  - Body height decreased [Recovered/Resolved]

NARRATIVE: CASE EVENT DATE: 2011
